FAERS Safety Report 23787051 (Version 1)
Quarter: 2024Q2

REPORT INFORMATION
  Report Type: Spontaneous
  Country: US (occurrence: US)
  Receive Date: 20240426
  Receipt Date: 20240426
  Transmission Date: 20240716
  Serious: Yes (Hospitalization, Other)
  Sender: FDA-Public Use
  Company Number: US-ULTRAGENYX PHARMACEUTICAL INC.-US-UGX-24-00719

PATIENT
  Sex: Female
  Weight: 15.19 kg

DRUGS (3)
  1. DOJOLVI [Suspect]
     Active Substance: TRIHEPTANOIN
     Indication: Very long-chain acyl-coenzyme A dehydrogenase deficiency
     Dosage: 11 MILLILITER, QID
     Route: 048
  2. DHA ALGAE OIL [Concomitant]
     Indication: Product used for unknown indication
     Dosage: 300 MILLIGRAM, CAPSULE
  3. LEVOCARNITINE [Concomitant]
     Active Substance: LEVOCARNITINE
     Indication: Product used for unknown indication
     Dosage: 100 MG/ML SOLUTION

REACTIONS (3)
  - Hospitalisation [Unknown]
  - Rhabdomyolysis [Unknown]
  - Gastroenteritis viral [Unknown]

NARRATIVE: CASE EVENT DATE: 20230101
